FAERS Safety Report 5862177-0 (Version None)
Quarter: 2008Q3

REPORT INFORMATION
  Report Type: 
  Country: None (occurrence: None)
  Receive Date: 20080828
  Receipt Date: 20080603
  Transmission Date: 20090109
  Serious: Yes (Other)
  Sender: FDA-Public Use
  Company Number: A0725330A

PATIENT
  Age: 39 Year
  Sex: Female
  Weight: 103.2 kg

DRUGS (4)
  1. ZOVIRAX [Suspect]
     Indication: GENITAL HERPES
     Dosage: 200MG TWICE PER DAY
     Route: 048
     Dates: start: 20080425
  2. LAMICTAL [Concomitant]
     Dosage: 300MG TWICE PER DAY
  3. TOPAMAX [Concomitant]
     Dosage: 600MG TWICE PER DAY
  4. DILANTIN [Concomitant]
     Dosage: 300MG TWICE PER DAY

REACTIONS (2)
  - LIP SWELLING [None]
  - RASH [None]
